FAERS Safety Report 14270829 (Version 1)
Quarter: 2017Q4

REPORT INFORMATION
  Report Type: Spontaneous
  Country: US (occurrence: US)
  Receive Date: 20171211
  Receipt Date: 20171211
  Transmission Date: 20180321
  Serious: Yes (Other)
  Sender: FDA-Public Use
  Company Number: US-OTSUKA-2017_011589

PATIENT
  Sex: Female

DRUGS (1)
  1. ABILIFY [Suspect]
     Active Substance: ARIPIPRAZOLE
     Indication: BIPOLAR DISORDER
     Dosage: 10 MG, QD
     Route: 065
     Dates: end: 201705

REACTIONS (8)
  - Anxiety [Unknown]
  - Abnormal behaviour [Unknown]
  - Depression [Unknown]
  - Back pain [Unknown]
  - Malaise [Unknown]
  - Fibromyalgia [Unknown]
  - Crying [Unknown]
  - Prescribed underdose [Unknown]
